FAERS Safety Report 18599700 (Version 1)
Quarter: 2020Q4

REPORT INFORMATION
  Report Type: Spontaneous
  Country: US (occurrence: US)
  Receive Date: 20201209
  Receipt Date: 20201209
  Transmission Date: 20210114
  Serious: No
  Sender: FDA-Public Use
  Company Number: None

PATIENT
  Age: 66 Year
  Sex: Male
  Weight: 117 kg

DRUGS (1)
  1. BAMLANIVIMAB. [Suspect]
     Active Substance: BAMLANIVIMAB
     Indication: COVID-19
     Dates: start: 20201208, end: 20201208

REACTIONS (6)
  - Lethargy [None]
  - Chills [None]
  - Pain [None]
  - Pyrexia [None]
  - Movement disorder [None]
  - Cough [None]

NARRATIVE: CASE EVENT DATE: 20201208
